FAERS Safety Report 7645923-5 (Version None)
Quarter: 2011Q3

REPORT INFORMATION
  Report Type: 
  Country: None (occurrence: None)
  Receive Date: 20110729
  Receipt Date: 20110721
  Transmission Date: 20111222
  Serious: Yes (Other)
  Sender: FDA-Public Use
  Company Number: FR-MERCK-1107FRA00100

PATIENT
  Age: 48 Year
  Sex: Male

DRUGS (5)
  1. SULFAMETHOXAZOLE AND TRIMETHOPRIM [Concomitant]
     Indication: HIV INFECTION CDC CATEGORY C3
     Route: 065
  2. LEUCOVORIN CALCIUM [Concomitant]
     Indication: HIV INFECTION CDC CATEGORY C3
     Route: 065
  3. ISENTRESS [Suspect]
     Indication: HIV INFECTION CDC CATEGORY C3
     Route: 048
     Dates: start: 20100505, end: 20101222
  4. ATAZANAVIR SULFATE [Suspect]
     Indication: HIV INFECTION CDC CATEGORY C3
     Route: 048
     Dates: start: 20100505, end: 20101222
  5. EMTRICITABINE [Suspect]
     Indication: HIV INFECTION CDC CATEGORY C3
     Route: 048
     Dates: start: 20100505, end: 20101222

REACTIONS (1)
  - OCULAR ICTERUS [None]
